FAERS Safety Report 18403870 (Version 2)
Quarter: 2022Q2

REPORT INFORMATION
  Report Type: Report from Study
  Country: US (occurrence: US)
  Receive Date: 20201020
  Receipt Date: 20220513
  Transmission Date: 20220721
  Serious: No
  Sender: FDA-Public Use
  Company Number: US-TEVA-2020-US-1839785

PATIENT
  Age: 27 Year
  Sex: Female

DRUGS (1)
  1. CLARAVIS [Suspect]
     Active Substance: ISOTRETINOIN
     Route: 065
     Dates: start: 20200828

REACTIONS (1)
  - Skin burning sensation [Unknown]

NARRATIVE: CASE EVENT DATE: 20200101
